FAERS Safety Report 7412424-9 (Version None)
Quarter: 2011Q2

REPORT INFORMATION
  Report Type: 
  Country: None (occurrence: None)
  Receive Date: 20110413
  Receipt Date: 20110404
  Transmission Date: 20111010
  Serious: Yes (Other)
  Sender: FDA-Public Use
  Company Number: PHHY2011AR28522

PATIENT
  Sex: Female

DRUGS (1)
  1. ACLASTA [Suspect]
     Indication: OSTEOPOROSIS
     Dosage: 5 MG,
     Route: 042

REACTIONS (4)
  - TOXICITY TO VARIOUS AGENTS [None]
  - ARTHRALGIA [None]
  - FATIGUE [None]
  - SKIN REACTION [None]
